FAERS Safety Report 13937816 (Version 1)
Quarter: 2017Q3

REPORT INFORMATION
  Report Type: Spontaneous
  Country: IN (occurrence: IN)
  Receive Date: 20170905
  Receipt Date: 20170905
  Transmission Date: 20171127
  Serious: Yes (Death, Other)
  Sender: FDA-Public Use
  Company Number: IN-PFIZER INC-2017379287

PATIENT
  Sex: Male

DRUGS (7)
  1. VORICONAZOLE. [Suspect]
     Active Substance: VORICONAZOLE
     Dosage: UNK
  2. TEICOPLANIN [Suspect]
     Active Substance: TEICOPLANIN
     Dosage: UNK
  3. COLISTIN SULFATE [Suspect]
     Active Substance: COLISTIN SULFATE
  4. FLUCONAZOLE ACCORD [Suspect]
     Active Substance: FLUCONAZOLE
     Dosage: UNK
  5. ANIDULAFUNGIN [Suspect]
     Active Substance: ANIDULAFUNGIN
     Dosage: UNK
  6. BACITRACIN. [Suspect]
     Active Substance: BACITRACIN
     Dosage: UNK
  7. MEROPENEM /01250502/ [Suspect]
     Active Substance: MEROPENEM
     Indication: PROCALCITONIN INCREASED
     Dosage: UNK

REACTIONS (7)
  - Acute respiratory distress syndrome [Not Recovered/Not Resolved]
  - Blood creatinine increased [None]
  - Cardiac arrest [Fatal]
  - Condition aggravated [Not Recovered/Not Resolved]
  - Multi-organ disorder [None]
  - Sepsis [Fatal]
  - Retroperitoneal abscess [Fatal]
